FAERS Safety Report 14776581 (Version 1)
Quarter: 2018Q2

REPORT INFORMATION
  Report Type: Spontaneous
  Country: US (occurrence: US)
  Receive Date: 20180418
  Receipt Date: 20180418
  Transmission Date: 20180711
  Serious: Yes (Other)
  Sender: FDA-Public Use
  Company Number: PHHY2018US061464

PATIENT
  Sex: Male
  Weight: 3.21 kg

DRUGS (1)
  1. AMOXICILLIN AND CLAVULANATE [Suspect]
     Active Substance: AMOXICILLIN\CLAVULANIC ACID
     Indication: FOETAL EXPOSURE DURING PREGNANCY
     Dosage: UNK
     Route: 064

REACTIONS (6)
  - Hepatosplenomegaly [Unknown]
  - Thrombocytopenia [Unknown]
  - Deafness [Unknown]
  - Cataract [Unknown]
  - Bone disorder [Unknown]
  - Foetal exposure during pregnancy [Unknown]
